FAERS Safety Report 5595924-6 (Version None)
Quarter: 2008Q1

REPORT INFORMATION
  Report Type: 
  Country: None (occurrence: None)
  Receive Date: 20080118
  Receipt Date: 20080114
  Transmission Date: 20080703
  Serious: Yes (Hospitalization)
  Sender: FDA-Public Use
  Company Number: US-ASTRAZENECA-2008UW00717

PATIENT
  Sex: Male

DRUGS (1)
  1. NEXIUM [Suspect]

REACTIONS (3)
  - CARDIAC DISORDER [None]
  - GASTROINTESTINAL DISORDER [None]
  - LIVER DISORDER [None]
